FAERS Safety Report 5003354-0 (Version None)
Quarter: 2006Q2

REPORT INFORMATION
  Report Type: 
  Country: None (occurrence: None)
  Receive Date: 20060511
  Receipt Date: 20060503
  Transmission Date: 20061013
  Serious: No
  Sender: FDA-Public Use
  Company Number: 2006-142031-NL

PATIENT
  Age: 31 Year
  Sex: Female

DRUGS (5)
  1. VECURONIUM BROMIDE [Suspect]
     Indication: INDUCTION OF ANAESTHESIA
     Route: 042
     Dates: start: 20060308, end: 20060308
  2. FENTANYL [Suspect]
     Indication: INDUCTION OF ANAESTHESIA
     Route: 042
     Dates: start: 20060308, end: 20060308
  3. ATROPINE SULFATE [Suspect]
     Indication: INDUCTION OF ANAESTHESIA
     Dates: start: 20060308, end: 20060308
  4. DESFLURANE [Suspect]
     Indication: MAINTENANCE OF ANAESTHESIA
     Route: 055
     Dates: start: 20060308, end: 20060308
  5. THIOPENTAL SODIUM [Suspect]
     Indication: INDUCTION OF ANAESTHESIA
     Route: 042
     Dates: start: 20060308, end: 20060308

REACTIONS (2)
  - PROCEDURAL COMPLICATION [None]
  - REACTION TO COLOURING [None]
